FAERS Safety Report 5797695-7 (Version None)
Quarter: 2008Q3

REPORT INFORMATION
  Report Type: 
  Country: None (occurrence: None)
  Receive Date: 20080702
  Receipt Date: 20080619
  Transmission Date: 20090109
  Serious: Yes (Other)
  Sender: FDA-Public Use
  Company Number: US-ELI_LILLY_AND_COMPANY-US200806004975

PATIENT
  Sex: Female

DRUGS (8)
  1. CYMBALTA [Suspect]
  2. REBIF [Concomitant]
     Indication: MULTIPLE SCLEROSIS
     Dates: start: 20070307
  3. REBIF [Concomitant]
     Dosage: 44 UG, 3/W
     Route: 058
     Dates: start: 20070907
  4. ASPIRIN [Concomitant]
     Indication: CORONARY ARTERY OCCLUSION
     Dosage: 81 MG, UNK
  5. METOPROLOL SUCCINATE [Concomitant]
     Indication: HYPERTENSION
  6. LYRICA [Concomitant]
  7. CLONAZEPAM [Concomitant]
  8. BACLOFEN [Concomitant]

REACTIONS (3)
  - CARDIAC ARREST [None]
  - GRAND MAL CONVULSION [None]
  - RESPIRATORY ARREST [None]
